FAERS Safety Report 7290185-4 (Version None)
Quarter: 2011Q1

REPORT INFORMATION
  Report Type: 
  Country: None (occurrence: None)
  Receive Date: 20110214
  Receipt Date: 20110201
  Transmission Date: 20110831
  Serious: Yes (Hospitalization, Other)
  Sender: FDA-Public Use
  Company Number: PHHY2010JP33455

PATIENT
  Sex: Female
  Weight: 43 kg

DRUGS (15)
  1. BIO THREE [Concomitant]
     Route: 048
  2. DUROTEP JANSSEN [Concomitant]
     Route: 062
  3. THYRADIN [Concomitant]
     Indication: PROPHYLAXIS
     Dosage: 50 UG, UNK
     Route: 048
     Dates: start: 20080801
  4. IFOSFAMIDE [Concomitant]
     Indication: METASTATIC RENAL CELL CARCINOMA
     Dosage: 3000000 DF, DAILY
     Dates: start: 20070920, end: 20090729
  5. AFINITOR [Suspect]
     Dosage: 5 MG, DAILY
     Route: 048
     Dates: start: 20100816, end: 20100820
  6. PROTECADIN [Concomitant]
     Route: 048
  7. WYPAX [Concomitant]
     Route: 048
  8. SODIUM ALGINATE [Concomitant]
     Dosage: 60 UL, UNK
     Route: 048
     Dates: start: 20100731
  9. HYPEN [Concomitant]
     Indication: METASTATIC RENAL CELL CARCINOMA
     Dosage: 200 MG, UNK
     Route: 048
     Dates: start: 20100406
  10. REBAMIPIDE [Concomitant]
     Route: 048
  11. AFINITOR [Suspect]
     Indication: METASTATIC RENAL CELL CARCINOMA
     Dosage: 10 MG, DAILY
     Route: 048
     Dates: start: 20100421, end: 20100518
  12. AFINITOR [Suspect]
     Dosage: 5 MG/DAY
     Route: 048
     Dates: start: 20100610, end: 20100704
  13. SUNITINIB MALATE [Concomitant]
  14. SORAFENIB TOSILATE [Concomitant]
     Indication: METASTATIC RENAL CELL CARCINOMA
     Dosage: 800 MG, QD
     Route: 048
     Dates: start: 20080731, end: 20100420
  15. MUCOSTA [Concomitant]
     Indication: PROPHYLAXIS
     Dosage: 300 MG, UNK
     Route: 048
     Dates: start: 20070901

REACTIONS (8)
  - INTERSTITIAL LUNG DISEASE [None]
  - WHITE BLOOD CELL COUNT DECREASED [None]
  - CELL MARKER INCREASED [None]
  - NEOPLASM MALIGNANT [None]
  - PNEUMONIA STAPHYLOCOCCAL [None]
  - FATIGUE [None]
  - COUGH [None]
  - MALAISE [None]
